FAERS Safety Report 13896378 (Version 1)
Quarter: 2017Q3

REPORT INFORMATION
  Report Type: Report from Study
  Country: CA (occurrence: CA)
  Receive Date: 20170823
  Receipt Date: 20170823
  Transmission Date: 20171127
  Serious: Yes (Other)
  Sender: FDA-Public Use
  Company Number: CA-FERRINGPH-2017FE03936

PATIENT

DRUGS (26)
  1. HYDROMORPHONE [Concomitant]
     Active Substance: HYDROMORPHONE
     Indication: PAIN
     Dosage: 2 MG, UNK
     Route: 048
  2. PREDNISONE. [Concomitant]
     Active Substance: PREDNISONE
     Indication: ROUTINE HEALTH MAINTENANCE
     Dosage: 5 MG, 2 TIMES DAILY
     Route: 048
  3. CABAZITAXEL [Suspect]
     Active Substance: CABAZITAXEL
     Dosage: 42 MG, EVERY 3 WEEKS
  4. STEMETIL                           /00013301/ [Concomitant]
     Active Substance: PROCHLORPERAZINE
     Dosage: 10 MG, UNK
     Route: 048
  5. BENADRYL [Concomitant]
     Active Substance: DIPHENHYDRAMINE HYDROCHLORIDE
     Indication: PREMEDICATION
     Dosage: 25 MG, UNK
     Route: 042
  6. DECADRON [Concomitant]
     Active Substance: DEXAMETHASONE
     Dosage: 10 MG, UNK
     Route: 042
  7. PROCHLORAZINE [Concomitant]
     Indication: NAUSEA
     Dosage: 10 MG, UNK
     Route: 048
  8. PROLIA [Concomitant]
     Active Substance: DENOSUMAB
     Indication: BONE DISORDER
     Route: 058
  9. ANODAN-HC [Concomitant]
     Indication: HAEMORRHOIDS
     Dosage: 0.5 %, 2 TIMES DAILY
  10. CABAZITAXEL [Suspect]
     Active Substance: CABAZITAXEL
     Dosage: 35 MG, EVERY 3 WEEKS
     Route: 042
  11. CALCIUM/VITAMIN D                  /01204201/ [Concomitant]
     Active Substance: CALCIUM CARBONATE\ERGOCALCIFEROL
     Indication: ROUTINE HEALTH MAINTENANCE
     Dosage: UNK, 2 TIMES DAILY
     Route: 048
  12. FAMOTIDINE. [Concomitant]
     Active Substance: FAMOTIDINE
     Dosage: 20 MG, UNK
     Route: 042
  13. VORTIOXETINE HYDROBROMIDE [Concomitant]
     Active Substance: VORTIOXETINE HYDROBROMIDE
     Indication: DEPRESSION
     Dosage: 10 MG, 1 TIME DAILY
     Route: 048
  14. TIAZAC XC [Concomitant]
     Active Substance: DILTIAZEM HYDROCHLORIDE
     Indication: HYPERTENSION
     Dosage: 360 MG, 1 TIME DAILY
     Route: 048
  15. CABAZITAXEL [Suspect]
     Active Substance: CABAZITAXEL
     Indication: PROSTATE CANCER
     Dosage: 35 MG, EVERY 3 WEEKS
     Route: 042
  16. CABAZITAXEL [Suspect]
     Active Substance: CABAZITAXEL
     Dosage: 35 MG, EVERY 3 WEEKS
     Route: 042
  17. SENNOSIDE [Concomitant]
     Active Substance: SENNOSIDES
     Indication: CONSTIPATION
     Dosage: 8.6 MG, UNK
     Route: 048
  18. CABAZITAXEL [Suspect]
     Active Substance: CABAZITAXEL
     Dosage: 35 MG, EVERY 3 WEEKS
     Route: 042
  19. CABAZITAXEL [Suspect]
     Active Substance: CABAZITAXEL
     Dosage: 35 MG, EVERY 3 WEEKS
     Route: 042
  20. CABAZITAXEL [Suspect]
     Active Substance: CABAZITAXEL
     Dosage: 35 MG, EVERY 3 WEEKS
     Route: 042
  21. DOCUSATE [Concomitant]
     Active Substance: DOCUSATE
     Indication: CONSTIPATION
     Dosage: 100 MG, UNK
     Route: 048
  22. COVERSYL                           /00790702/ [Concomitant]
     Active Substance: PERINDOPRIL
     Indication: HYPERTENSION
     Dosage: 4 MG, 1 TIME DAILY
     Route: 048
  23. DEGARELIX [Suspect]
     Active Substance: DEGARELIX
     Indication: PROSTATE CANCER
     Dosage: 89 MG, MONTHLY
     Route: 058
  24. DEGARELIX [Suspect]
     Active Substance: DEGARELIX
     Dosage: 80 MG, MONTHLY
     Route: 058
  25. FOSFOMYCIN TROMETAMOL [Concomitant]
     Indication: ANTIBIOTIC THERAPY
     Dosage: 3 G, 1 TIME DAILY
     Route: 048
  26. VITAMIN C [Concomitant]
     Active Substance: ASCORBIC ACID
     Indication: ROUTINE HEALTH MAINTENANCE
     Dosage: 1500 MG, UNK
     Route: 048

REACTIONS (6)
  - Insomnia [Recovered/Resolved]
  - Nausea [Recovered/Resolved]
  - Diarrhoea [Recovered/Resolved]
  - Neutropenia [Recovered/Resolved]
  - Blood pressure systolic increased [Recovered/Resolved]
  - Fatigue [Recovered/Resolved]
